FAERS Safety Report 13615026 (Version 2)
Quarter: 2017Q3

REPORT INFORMATION
  Report Type: Spontaneous
  Country: US (occurrence: US)
  Receive Date: 20170606
  Receipt Date: 20170807
  Transmission Date: 20171127
  Serious: No
  Sender: FDA-Public Use
  Company Number: US-GLAXOSMITHKLINE-US2017085065

PATIENT
  Sex: Male

DRUGS (3)
  1. DEXILANT [Concomitant]
     Active Substance: DEXLANSOPRAZOLE
  2. BREO ELLIPTA [Suspect]
     Active Substance: FLUTICASONE FUROATE\VILANTEROL TRIFENATATE
     Indication: PRODUCT USED FOR UNKNOWN INDICATION
     Dosage: 1 PUFF(S), 1D
     Route: 055
  3. ADVIL [Concomitant]
     Active Substance: IBUPROFEN

REACTIONS (5)
  - Insomnia [Unknown]
  - Underdose [Unknown]
  - Dyspnoea [Unknown]
  - Product quality issue [Unknown]
  - Drug ineffective [Recovered/Resolved]
